FAERS Safety Report 8722802 (Version 5)
Quarter: 2012Q4

REPORT INFORMATION
  Report Type: 
  Country: US (occurrence: US)
  Receive Date: 20120814
  Receipt Date: 20121122
  Transmission Date: 20130627
  Serious: Yes (Life-Threatening, Hospitalization)
  Sender: FDA-Public Use
  Company Number: US-GE HEALTHCARE MEDICAL DIAGNOSTICS-INDT-PR-1208S-0006

PATIENT
  Age: 80 Year
  Sex: Female

DRUGS (2)
  1. INDIUM IN111 DTPA [Suspect]
     Indication: HYDROCEPHALUS
     Route: 037
     Dates: start: 20120808, end: 20120808
  2. INDIUM IN111 DTPA [Suspect]
     Indication: DIAGNOSTIC PROCEDURE

REACTIONS (5)
  - CSF white blood cell count increased [Recovered/Resolved]
  - CSF protein increased [Recovered/Resolved]
  - Headache [Recovered/Resolved]
  - Chills [Recovered/Resolved]
  - Pain [Recovered/Resolved]
